FAERS Safety Report 19002567 (Version 1)
Quarter: 2021Q1

REPORT INFORMATION
  Report Type: Spontaneous
  Country: US (occurrence: US)
  Receive Date: 20210312
  Receipt Date: 20210312
  Transmission Date: 20210420
  Serious: No
  Sender: FDA-Public Use
  Company Number: US-ALLERGAN-2019074US

PATIENT
  Sex: Female
  Weight: 88.45 kg

DRUGS (3)
  1. PREMARIN [Concomitant]
     Active Substance: ESTROGENS, CONJUGATED
     Indication: VULVOVAGINAL DRYNESS
     Dosage: 0.5 G
     Route: 067
  2. ESTRACE [Suspect]
     Active Substance: ESTRADIOL
     Indication: UROGENITAL ATROPHY
     Dosage: ONCE A WEEK
     Route: 065
  3. ESTRACE [Suspect]
     Active Substance: ESTRADIOL
     Dosage: THREE TIMES A WEEK
     Route: 065

REACTIONS (2)
  - Drug ineffective [Unknown]
  - Product physical consistency issue [Unknown]
